FAERS Safety Report 8465437-2 (Version None)
Quarter: 2012Q2

REPORT INFORMATION
  Report Type: 
  Country: None (occurrence: None)
  Receive Date: 20120626
  Receipt Date: 20120620
  Transmission Date: 20120825
  Serious: Yes (Other)
  Sender: FDA-Public Use
  Company Number: PHEH2012US012469

PATIENT
  Sex: Female

DRUGS (1)
  1. GILENYA [Suspect]
     Dosage: UNK UKN, UNK
     Route: 048

REACTIONS (3)
  - ABORTION SPONTANEOUS [None]
  - FEMALE SEX HORMONE LEVEL ABNORMAL [None]
  - MATERNAL EXPOSURE DURING PREGNANCY [None]
